FAERS Safety Report 17830563 (Version 1)
Quarter: 2020Q2

REPORT INFORMATION
  Report Type: Spontaneous
  Country: US (occurrence: US)
  Receive Date: 20200527
  Receipt Date: 20200527
  Transmission Date: 20200714
  Serious: No
  Sender: FDA-Public Use
  Company Number: US-JNJFOC-20200528877

PATIENT
  Age: 92 Year
  Sex: Male
  Weight: 68.1 kg

DRUGS (2)
  1. DURAGESIC [Suspect]
     Active Substance: FENTANYL
     Indication: SPINAL DISORDER
  2. DURAGESIC [Suspect]
     Active Substance: FENTANYL
     Indication: BACK PAIN
     Route: 065

REACTIONS (3)
  - Application site erosion [Recovering/Resolving]
  - Skin fragility [Unknown]
  - Application site haemorrhage [Recovering/Resolving]

NARRATIVE: CASE EVENT DATE: 202005
